FAERS Safety Report 14567319 (Version 2)
Quarter: 2018Q2

REPORT INFORMATION
  Report Type: Spontaneous
  Country: FR (occurrence: FR)
  Receive Date: 20180223
  Receipt Date: 20180426
  Transmission Date: 20180711
  Serious: Yes (Death, Hospitalization)
  Sender: FDA-Public Use
  Company Number: FR-PFIZER INC-2018075614

PATIENT
  Age: 53 Year
  Sex: Male
  Weight: 58 kg

DRUGS (18)
  1. DEBRIDAT /00465201/ [Concomitant]
     Active Substance: TRIMEBUTINE MALEATE
     Indication: GASTROINTESTINAL DISORDER
     Dosage: 100 MG, THREE TIMES A DAY
     Route: 042
     Dates: start: 20180213, end: 20180219
  2. MORPHINE SULFATE. [Concomitant]
     Active Substance: MORPHINE SULFATE
     Indication: ABDOMINAL PAIN
     Dosage: 5 MG, DAILY
     Route: 042
     Dates: start: 20180213, end: 20180213
  3. ATARAX [Concomitant]
     Active Substance: HYDROXYZINE HYDROCHLORIDE
     Indication: ANXIETY
     Dosage: 50 MG, ONCE DAILY
     Route: 042
     Dates: start: 20180213, end: 20180219
  4. LARGACTIL /00011901/ [Concomitant]
     Active Substance: CHLORPROMAZINE
     Indication: ANXIETY
  5. XALKORI [Suspect]
     Active Substance: CRIZOTINIB
     Indication: NON-SMALL CELL LUNG CANCER
     Dosage: 250 MG, ONCE DAILY
     Route: 048
     Dates: start: 20180115, end: 20180219
  6. PARACETAMOL [Concomitant]
     Active Substance: ACETAMINOPHEN
     Indication: ABDOMINAL PAIN
     Dosage: 1 G, THREE TIMES A DAY
     Route: 042
     Dates: start: 20180213, end: 20180219
  7. PANTOPRAZOLE [Concomitant]
     Active Substance: PANTOPRAZOLE
     Indication: GASTROOESOPHAGEAL REFLUX DISEASE
     Dosage: 40 MG, ONCE DAILY
     Dates: start: 20180213, end: 20180215
  8. NEFOPAM [Concomitant]
     Active Substance: NEFOPAM
     Dosage: 120 MG, DAILY
     Route: 042
     Dates: start: 20180213, end: 20180219
  9. LARGACTIL /00011901/ [Concomitant]
     Active Substance: CHLORPROMAZINE
     Indication: AGITATION
     Dosage: 6.25 MG, DAILY
     Route: 042
     Dates: start: 20180213, end: 20180219
  10. MOVICOL [Concomitant]
     Active Substance: POLYETHYLENE GLYCOL 3350\POTASSIUM CHLORIDE\SODIUM BICARBONATE\SODIUM CHLORIDE
     Indication: GASTROINTESTINAL DISORDER
     Dosage: 1 DF, DAILY
     Route: 048
     Dates: start: 20180213, end: 20180219
  11. PRIMPERAN [Concomitant]
     Active Substance: METOCLOPRAMIDE HYDROCHLORIDE
     Indication: ABDOMINAL PAIN
     Dosage: 10 MG, THREE TIMES A DAY
     Route: 042
     Dates: start: 20180213, end: 20180213
  12. SPASFON /00934601/ [Concomitant]
     Active Substance: PHLOROGLUCINOL
     Indication: ABDOMINAL PAIN
     Dosage: 2 DF, DAILY
     Route: 042
     Dates: start: 20180213, end: 20180219
  13. INNOHEP [Concomitant]
     Active Substance: TINZAPARIN SODIUM
     Indication: THROMBOSIS
     Dosage: 10000 IU, DAILY
     Route: 058
     Dates: start: 20180213, end: 20180216
  14. MIDAZOLAM [Concomitant]
     Active Substance: MIDAZOLAM HYDROCHLORIDE
     Indication: SEDATION
     Dosage: 50 MG, DAILY
     Route: 042
     Dates: start: 20180214, end: 20180219
  15. NEFOPAM [Concomitant]
     Active Substance: NEFOPAM
     Indication: ABDOMINAL PAIN
     Dosage: 20 MG, THREE TIMES A DAY
     Route: 042
     Dates: start: 20180213, end: 20180213
  16. METHYLPREDNISOLONE. [Concomitant]
     Active Substance: METHYLPREDNISOLONE
     Indication: INFLAMMATION
     Dosage: 120 MG, ONCE DAILY
     Route: 042
     Dates: start: 20180213, end: 20180219
  17. PROFENID [Concomitant]
     Active Substance: KETOPROFEN
     Indication: ABDOMINAL PAIN
     Dosage: 50 MG, DAILY
     Route: 042
     Dates: start: 20180213, end: 20180219
  18. TOPALGIC [Concomitant]
     Indication: ABDOMINAL PAIN
     Dosage: 100 MG, THREE TIMES A DAY
     Route: 042
     Dates: start: 20180213, end: 20180213

REACTIONS (1)
  - Neoplasm progression [Fatal]

NARRATIVE: CASE EVENT DATE: 20180213
